FAERS Safety Report 16358283 (Version 1)
Quarter: 2019Q2

REPORT INFORMATION
  Report Type: Spontaneous
  Country: US (occurrence: US)
  Receive Date: 20190418
  Receipt Date: 20190418
  Transmission Date: 20190711
  Serious: Yes (Hospitalization)
  Sender: FDA-Public Use
  Company Number: None

PATIENT
  Age: 12 Year
  Sex: Male
  Weight: 30.6 kg

DRUGS (7)
  1. CYTARABINE. [Suspect]
     Active Substance: CYTARABINE
     Dates: end: 20190328
  2. VINCRISTINE SULFATE. [Suspect]
     Active Substance: VINCRISTINE SULFATE
     Dosage: ?          OTHER DOSE:4.8MG;?
     Dates: end: 20190328
  3. DEXAMETHASONE. [Suspect]
     Active Substance: DEXAMETHASONE
     Dates: end: 20190401
  4. METHOTREXATE. [Suspect]
     Active Substance: METHOTREXATE
     Dates: end: 20190328
  5. MITOXANTRONE HYDROCHLORIDE. [Suspect]
     Active Substance: MITOXANTRONE HYDROCHLORIDE
     Dates: end: 20190315
  6. ONCASPAR [Suspect]
     Active Substance: PEGASPARGASE
     Dates: end: 20190330
  7. HYDROCORTISONE. [Suspect]
     Active Substance: HYDROCORTISONE
     Dates: end: 20190328

REACTIONS (13)
  - Haematochezia [None]
  - Neutropenia [None]
  - Incision site erythema [None]
  - Ileus [None]
  - Purulent discharge [None]
  - Enterococcal infection [None]
  - Abdominal pain [None]
  - Platelet transfusion [None]
  - Intussusception [None]
  - Postoperative wound infection [None]
  - Packed red blood cell transfusion [None]
  - Incision site pain [None]
  - Culture wound positive [None]

NARRATIVE: CASE EVENT DATE: 20190403
